FAERS Safety Report 13242834 (Version 1)
Quarter: 2017Q1

REPORT INFORMATION
  Report Type: Spontaneous
  Country: US (occurrence: US)
  Receive Date: 20170216
  Receipt Date: 20170216
  Transmission Date: 20170428
  Serious: Yes (Death)
  Sender: FDA-Public Use
  Company Number: US-CELGENEUS-USA-2017025332

PATIENT
  Sex: Male

DRUGS (11)
  1. THALOMID [Suspect]
     Active Substance: THALIDOMIDE
     Dosage: 300MG - 100MG
     Route: 048
     Dates: start: 200510
  2. THALOMID [Suspect]
     Active Substance: THALIDOMIDE
     Dosage: 100 MILLIGRAM
     Route: 048
     Dates: start: 201611
  3. THALOMID [Suspect]
     Active Substance: THALIDOMIDE
     Dosage: 100MG - 50MG
     Route: 048
     Dates: start: 200910
  4. THALOMID [Suspect]
     Active Substance: THALIDOMIDE
     Dosage: 100 MILLIGRAM
     Route: 048
     Dates: start: 201203
  5. THALOMID [Suspect]
     Active Substance: THALIDOMIDE
     Dosage: 100-200 MILLIGRAM
     Route: 048
     Dates: start: 200110
  6. THALOMID [Suspect]
     Active Substance: THALIDOMIDE
     Dosage: 50MG - 100MG
     Route: 048
     Dates: start: 201004
  7. THALOMID [Suspect]
     Active Substance: THALIDOMIDE
     Indication: LICHEN PLANUS
     Dosage: 50 MILLIGRAM
     Route: 048
     Dates: start: 200108
  8. THALOMID [Suspect]
     Active Substance: THALIDOMIDE
     Dosage: 150-250 MILLIGRAM
     Route: 048
     Dates: start: 200402
  9. THALOMID [Suspect]
     Active Substance: THALIDOMIDE
     Dosage: 250 MILLIGRAM
     Route: 048
     Dates: start: 200412
  10. THALOMID [Suspect]
     Active Substance: THALIDOMIDE
     Dosage: 100 MILLIGRAM
     Route: 048
     Dates: start: 200807
  11. THALOMID [Suspect]
     Active Substance: THALIDOMIDE
     Dosage: 100 MILLIGRAM
     Route: 048
     Dates: start: 201010

REACTIONS (1)
  - Death [Fatal]
